FAERS Safety Report 6863362-1 (Version None)
Quarter: 2010Q3

REPORT INFORMATION
  Report Type: 
  Country: None (occurrence: None)
  Receive Date: 20100721
  Receipt Date: 20100709
  Transmission Date: 20110219
  Serious: Yes (Hospitalization)
  Sender: FDA-Public Use
  Company Number: US-ELI_LILLY_AND_COMPANY-US201007002013

PATIENT
  Sex: Female

DRUGS (8)
  1. PEMETREXED [Suspect]
     Indication: OVARIAN CANCER
     Dosage: 1057 MG, UNK
     Route: 042
     Dates: start: 20100402, end: 20100608
  2. BEVACIZUMAB [Suspect]
     Indication: OVARIAN CANCER
     Dosage: 870 MG, UNK
     Route: 042
     Dates: start: 20100402, end: 20100608
  3. METOPROLOL [Concomitant]
     Dosage: 60 MG, DAILY (1/D)
  4. AMBIEN [Concomitant]
     Dosage: 5 MG, EACH EVENING
  5. LIPITOR [Concomitant]
     Dosage: 10 MG, DAILY (1/D)
  6. MAGNESIUM OXIDE [Concomitant]
     Dosage: 400 MG, DAILY (1/D)
  7. POTASSIUM CHLORIDE [Concomitant]
     Dosage: 20 MEQ, DAILY (1/D)
  8. DILAUDID [Concomitant]
     Indication: ABDOMINAL PAIN
     Route: 042

REACTIONS (2)
  - DEHYDRATION [None]
  - NAUSEA [None]
